FAERS Safety Report 10050504 (Version 1)
Quarter: 2014Q2

REPORT INFORMATION
  Report Type: Spontaneous
  Country: US (occurrence: US)
  Receive Date: 20140401
  Receipt Date: 20140401
  Transmission Date: 20141212
  Serious: No
  Sender: FDA-Public Use
  Company Number: US-ASTRAZENECA-2013SE81403

PATIENT
  Age: 24 Year
  Sex: Female
  Weight: 22.7 kg

DRUGS (3)
  1. NEXIUM [Suspect]
     Indication: ULCER
     Route: 048
     Dates: start: 20131029
  2. ALOVERT [Concomitant]
     Indication: HYPERSENSITIVITY
     Dosage: DAILY
  3. MIRLAX [Concomitant]
     Dosage: DAILY

REACTIONS (1)
  - Feeding tube complication [Recovered/Resolved]
